FAERS Safety Report 14248474 (Version 2)
Quarter: 2021Q1

REPORT INFORMATION
  Report Type: Spontaneous
  Country: CA (occurrence: CA)
  Receive Date: 20171204
  Receipt Date: 20210302
  Transmission Date: 20210419
  Serious: Yes (Other)
  Sender: FDA-Public Use
  Company Number: CA-PURDUE PHARMA-CAN-2017-0008118

PATIENT
  Age: 62 Year
  Sex: Male
  Weight: 112 kg

DRUGS (14)
  1. ACTEMRA [Suspect]
     Active Substance: TOCILIZUMAB
     Dosage: 800 MG, MONTHLY
  2. LIPITOR [Concomitant]
     Active Substance: ATORVASTATIN CALCIUM
  3. ACTEMRA [Suspect]
     Active Substance: TOCILIZUMAB
     Dosage: 500 MG, MONTHLY 1 EVERY 4 WEEKS
  4. OXYCODONE HYDROCHLORIDE. [Suspect]
     Active Substance: OXYCODONE HYDROCHLORIDE
     Indication: PAIN
     Dosage: UNK
     Route: 065
  5. ZANTAC [Concomitant]
     Active Substance: RANITIDINE HYDROCHLORIDE
  6. ACTEMRA [Suspect]
     Active Substance: TOCILIZUMAB
     Dosage: 800 MG, MONTHLY 1 EVERY 4 WEEKS
  7. DIOVAN [Concomitant]
     Active Substance: VALSARTAN
  8. FOLIC ACID. [Concomitant]
     Active Substance: FOLIC ACID
  9. OXYCODONE HYDROCHLORIDE. [Suspect]
     Active Substance: OXYCODONE HYDROCHLORIDE
     Dosage: UNK
     Route: 065
  10. CLINDAMYCIN. [Concomitant]
     Active Substance: CLINDAMYCIN
     Indication: TOOTH EXTRACTION
  11. METHOTREXATE. [Concomitant]
     Active Substance: METHOTREXATE
     Dosage: 200 MG, WEEKLY
     Route: 048
  12. PREDNISONE. [Concomitant]
     Active Substance: PREDNISONE
  13. ACTEMRA [Suspect]
     Active Substance: TOCILIZUMAB
     Indication: RHEUMATOID ARTHRITIS
     Dosage: 800 MG, 1 EVERY 4 WEEK(S)
     Route: 042
  14. CELEBREX [Concomitant]
     Active Substance: CELECOXIB

REACTIONS (15)
  - Abdominal pain [Not Recovered/Not Resolved]
  - Drug use disorder [Not Recovered/Not Resolved]
  - Headache [Not Recovered/Not Resolved]
  - Infection [Not Recovered/Not Resolved]
  - Pain [Not Recovered/Not Resolved]
  - Drug dependence [Not Recovered/Not Resolved]
  - Joint effusion [Not Recovered/Not Resolved]
  - Liver function test increased [Not Recovered/Not Resolved]
  - Nasopharyngitis [Not Recovered/Not Resolved]
  - Cyst removal [Not Recovered/Not Resolved]
  - Synovitis [Not Recovered/Not Resolved]
  - Weight increased [Not Recovered/Not Resolved]
  - Diverticulitis [Not Recovered/Not Resolved]
  - Abdominal discomfort [Not Recovered/Not Resolved]
  - Viral upper respiratory tract infection [Not Recovered/Not Resolved]
